FAERS Safety Report 22908126 (Version 5)
Quarter: 2024Q3

REPORT INFORMATION
  Report Type: Spontaneous
  Country: US (occurrence: US)
  Receive Date: 20230905
  Receipt Date: 20240906
  Transmission Date: 20241017
  Serious: Yes (Other)
  Sender: SANOFI AVENTIS
  Company Number: US-SA-SAC20230901000122

PATIENT
  Sex: Female

DRUGS (1)
  1. DUPIXENT [Suspect]
     Active Substance: DUPILUMAB
     Indication: Dermatitis atopic
     Dosage: 300 MG, QOW
     Route: 058

REACTIONS (14)
  - Hypothyroidism [Unknown]
  - Nasal pruritus [Unknown]
  - Dry throat [Unknown]
  - Weight increased [Unknown]
  - Headache [Unknown]
  - Oropharyngeal pain [Unknown]
  - Ocular hyperaemia [Unknown]
  - Eye swelling [Recovered/Resolved]
  - Back pain [Unknown]
  - Erythema [Unknown]
  - Pruritus [Unknown]
  - Rash [Unknown]
  - Therapeutic response decreased [Unknown]
  - Eye pruritus [Unknown]
